FAERS Safety Report 5010874-1 (Version None)
Quarter: 2006Q2

REPORT INFORMATION
  Report Type: 
  Country: None (occurrence: None)
  Receive Date: 20060525
  Receipt Date: 20060517
  Transmission Date: 20061013
  Serious: Yes (Hospitalization)
  Sender: FDA-Public Use
  Company Number: IT-GLAXOSMITHKLINE-B0424993A

PATIENT
  Age: 24 Year
  Sex: Female

DRUGS (1)
  1. AUGMENTIN '125' [Suspect]
     Indication: GINGIVITIS
     Route: 048
     Dates: start: 20060502, end: 20060502

REACTIONS (3)
  - OEDEMA [None]
  - RASH ERYTHEMATOUS [None]
  - URTICARIA [None]
